FAERS Safety Report 7040596-7 (Version None)
Quarter: 2010Q4

REPORT INFORMATION
  Report Type: 
  Country: None (occurrence: None)
  Receive Date: 20101012
  Receipt Date: 20101001
  Transmission Date: 20110411
  Serious: Yes (Other)
  Sender: FDA-Public Use
  Company Number: US-AMGEN-KDL442537

PATIENT
  Sex: Male
  Weight: 95.1 kg

DRUGS (13)
  1. PROCRIT [Suspect]
     Indication: ANAEMIA
     Route: 058
     Dates: start: 20100501
  2. PEGASYS [Concomitant]
     Route: 058
     Dates: start: 20100128
  3. PEGASYS [Concomitant]
     Route: 058
     Dates: start: 20100128
  4. RIBAVIRIN [Concomitant]
     Route: 048
     Dates: start: 20100101
  5. NEXIUM [Concomitant]
     Route: 048
     Dates: start: 20060101
  6. POTASSIUM [Concomitant]
     Route: 048
     Dates: start: 20060101
  7. FUROSEMIDE [Concomitant]
     Route: 048
     Dates: start: 20060101
  8. LISINOPRIL [Concomitant]
     Route: 048
     Dates: start: 20060101
  9. THEOPHYLLINE [Concomitant]
     Route: 048
     Dates: start: 20060101
  10. PRO-AIR (PARKE DAVIS) [Concomitant]
     Route: 045
     Dates: start: 20060101
  11. ADVAIR DISKUS 100/50 [Concomitant]
     Route: 045
     Dates: start: 20060101
  12. MULTI-VITAMINS [Concomitant]
     Route: 048
     Dates: start: 19700101
  13. KLOR-CON [Concomitant]
     Route: 048
     Dates: start: 20060101

REACTIONS (4)
  - ANORECTAL DISCOMFORT [None]
  - FAECES DISCOLOURED [None]
  - GASTROINTESTINAL HAEMORRHAGE [None]
  - PAINFUL DEFAECATION [None]
